FAERS Safety Report 4593837-X (Version None)
Quarter: 2005Q1

REPORT INFORMATION
  Report Type: 
  Country: None (occurrence: None)
  Receive Date: 20050301
  Receipt Date: 20030825
  Transmission Date: 20050727
  Serious: Yes (Life-Threatening, Hospitalization)
  Sender: FDA-Public Use
  Company Number: PHBS2003IT09217

PATIENT
  Age: 60 Year
  Sex: Female

DRUGS (8)
  1. PREDNISOLONE [Concomitant]
     Dosage: 25 MG/DAY
     Dates: start: 20031029
  2. DESLORATADINE [Concomitant]
     Dosage: 5 MG/DAY
     Dates: start: 20031029
  3. GLEEVEC [Suspect]
     Dosage: 400 MG/DAY
     Route: 048
     Dates: start: 20030516, end: 20030727
  4. GLEEVEC [Suspect]
     Dosage: 300 MG/DAY
     Route: 048
     Dates: start: 20031029
  5. GLEEVEC [Suspect]
     Dosage: 400 MG/DAY
     Route: 048
     Dates: end: 20030819
  6. LANSOX [Suspect]
     Indication: NAUSEA
     Dosage: 15 MG/DAY
     Route: 048
     Dates: start: 20030716, end: 20030727
  7. LANSOX [Suspect]
     Dosage: 1 DF, QD
     Route: 048
     Dates: start: 20031028
  8. LANSOX [Suspect]
     Dosage: 15 MG/DAY
     Route: 048
     Dates: end: 20030801

REACTIONS (13)
  - ANGIONEUROTIC OEDEMA [None]
  - CONJUNCTIVAL HYPERAEMIA [None]
  - CONJUNCTIVITIS [None]
  - DRUG INTERACTION [None]
  - ERYTHEMA [None]
  - EYELID OEDEMA [None]
  - FACE OEDEMA [None]
  - NAUSEA [None]
  - RASH GENERALISED [None]
  - STEVENS-JOHNSON SYNDROME [None]
  - STOMATITIS [None]
  - TOXIC SKIN ERUPTION [None]
  - URTICARIA [None]
